FAERS Safety Report 18139154 (Version 1)
Quarter: 2020Q3

REPORT INFORMATION
  Report Type: Spontaneous
  Country: US (occurrence: US)
  Receive Date: 20200812
  Receipt Date: 20200812
  Transmission Date: 20201103
  Serious: Yes (Disabling)
  Sender: FDA-Public Use
  Company Number: None

PATIENT
  Age: 22 Year
  Sex: Female
  Weight: 65.25 kg

DRUGS (3)
  1. NEXT HAND SANITIZER [Suspect]
     Active Substance: ALCOHOL
     Indication: COVID-19 PROPHYLAXIS
     Route: 061
     Dates: start: 20200710, end: 20200811
  2. PRENATAL VITAMINS [Concomitant]
     Active Substance: VITAMINS
  3. BUTALBITAL [Concomitant]
     Active Substance: BUTALBITAL

REACTIONS (7)
  - Migraine [None]
  - Exposure during pregnancy [None]
  - Muscle spasms [None]
  - Vision blurred [None]
  - Recalled product administered [None]
  - Drug ineffective [None]
  - Nausea [None]

NARRATIVE: CASE EVENT DATE: 20200809
